FAERS Safety Report 7127926-2 (Version None)
Quarter: 2010Q4

REPORT INFORMATION
  Report Type: 
  Country: None (occurrence: None)
  Receive Date: 20101130
  Receipt Date: 20101116
  Transmission Date: 20110411
  Serious: Yes (Other)
  Sender: FDA-Public Use
  Company Number: DE-RANBAXY-2010RR-39630

PATIENT
  Age: 26 Year
  Sex: Female
  Weight: 55 kg

DRUGS (5)
  1. OMEPRAZOLE [Suspect]
     Indication: HELICOBACTER INFECTION
     Dosage: UNK
     Dates: start: 20100904, end: 20100908
  2. CLARITHROMYCIN [Suspect]
     Dosage: UNK
     Dates: start: 20100904, end: 20100908
  3. METRONIDAZOLE [Suspect]
     Dosage: UNK
     Dates: start: 20100904, end: 20100908
  4. ZACPAC [Concomitant]
     Dosage: UNK
     Dates: start: 20100622
  5. TAVANIC [Concomitant]
     Dosage: UNK
     Dates: start: 20100710

REACTIONS (5)
  - ANXIETY [None]
  - CRYING [None]
  - INSOMNIA [None]
  - PANIC ATTACK [None]
  - RESTLESSNESS [None]
